FAERS Safety Report 10952822 (Version 1)
Quarter: 2015Q1

REPORT INFORMATION
  Report Type: Spontaneous
  Country: US (occurrence: None)
  Receive Date: 20150324
  Receipt Date: 20150324
  Transmission Date: 20150721
  Serious: Yes (Hospitalization)
  Sender: FDA-Public Use
  Company Number: None

PATIENT
  Age: 64 Year
  Sex: Female
  Weight: 56.7 kg

DRUGS (1)
  1. TAMIFLU [Suspect]
     Active Substance: OSELTAMIVIR PHOSPHATE
     Indication: INFLUENZA
     Route: 048
     Dates: start: 20140128, end: 20140129

REACTIONS (6)
  - Acne [None]
  - Diarrhoea [None]
  - Nausea [None]
  - Hypersensitivity [None]
  - Pneumonia [None]
  - Rosacea [None]

NARRATIVE: CASE EVENT DATE: 20141130
